FAERS Safety Report 10886561 (Version 4)
Quarter: 2015Q3

REPORT INFORMATION
  Report Type: Spontaneous
  Country: JP (occurrence: JP)
  Receive Date: 20150304
  Receipt Date: 20150713
  Transmission Date: 20151125
  Serious: Yes (Other)
  Sender: FDA-Public Use
  Company Number: JP-GLAXOSMITHKLINE-JP2015JPN006082

PATIENT
  Age: 46 Year
  Sex: Male
  Weight: 70 kg

DRUGS (5)
  1. SULPIRIDE [Concomitant]
     Active Substance: SULPIRIDE
  2. LAMICTAL [Suspect]
     Active Substance: LAMOTRIGINE
     Indication: DEPRESSION
     Dosage: 25 MG, BID
     Route: 048
     Dates: start: 20140418, end: 20140508
  3. LIMAS [Concomitant]
     Active Substance: LITHIUM CARBONATE
     Dosage: UNK
  4. EXCEGRAN [Concomitant]
     Active Substance: ZONISAMIDE
  5. LAMICTAL [Suspect]
     Active Substance: LAMOTRIGINE
     Indication: BIPOLAR DISORDER
     Dosage: 25 MG, QD
     Route: 048
     Dates: start: 20140404, end: 20140417

REACTIONS (8)
  - Rash [Unknown]
  - Aspartate aminotransferase increased [Unknown]
  - Hepatic function abnormal [Recovering/Resolving]
  - Alanine aminotransferase increased [Unknown]
  - Drug eruption [Recovering/Resolving]
  - Erythema [Recovering/Resolving]
  - Blood alkaline phosphatase increased [Unknown]
  - Hepatic enzyme increased [Unknown]

NARRATIVE: CASE EVENT DATE: 20140508
